FAERS Safety Report 5731323-1 (Version None)
Quarter: 2008Q2

REPORT INFORMATION
  Report Type: 
  Country: None (occurrence: None)
  Receive Date: 20080506
  Receipt Date: 20080428
  Transmission Date: 20081010
  Serious: Yes (Hospitalization)
  Sender: FDA-Public Use
  Company Number: 163-20785-08040360

PATIENT
  Age: 63 Year
  Sex: Male
  Weight: 87.0906 kg

DRUGS (9)
  1. THALOMID [Suspect]
     Indication: MULTIPLE MYELOMA
     Dosage: 100 MG, 1 IN 1 D, ORAL
     Route: 048
     Dates: start: 20070111, end: 20070125
  2. THALOMID [Suspect]
     Indication: MULTIPLE MYELOMA
     Dosage: 100 MG, 1 IN 1 D, ORAL
     Route: 048
     Dates: start: 20070130, end: 20070202
  3. DECADRON [Concomitant]
     Indication: MULTIPLE MYELOMA
     Dates: start: 20070111
  4. ARANESP [Suspect]
     Indication: HAEMOGLOBIN ABNORMAL
     Dosage: 100 FEG, DAILY, SUBCUTANEOUS
     Route: 058
     Dates: start: 20080207, end: 20080207
  5. ASPIRIN [Suspect]
     Indication: DRUG USE FOR UNKNOWN INDICATION
  6. ALLOPURINOL [Concomitant]
  7. AREDIA [Concomitant]
  8. PREVACID [Concomitant]
  9. HYDROCHLOROTHIAZIDE(HYDROCHLOROTHIAZIDE) (TABLETS) [Concomitant]

REACTIONS (9)
  - BODY TEMPERATURE INCREASED [None]
  - CONVULSION [None]
  - FLUID RETENTION [None]
  - HAEMOGLOBIN DECREASED [None]
  - HEADACHE [None]
  - HYPERTENSION [None]
  - RASH [None]
  - REVERSIBLE POSTERIOR LEUKOENCEPHALOPATHY SYNDROME [None]
  - SWELLING FACE [None]
